FAERS Safety Report 5231144-2 (Version None)
Quarter: 2007Q1

REPORT INFORMATION
  Report Type: 
  Country: None (occurrence: None)
  Receive Date: 20070206
  Receipt Date: 20070129
  Transmission Date: 20070707
  Serious: Yes (Hospitalization)
  Sender: FDA-Public Use
  Company Number: US-MERCK-0701USA04988

PATIENT
  Age: 68 Year
  Sex: Female

DRUGS (5)
  1. HYDRODIURIL [Suspect]
     Indication: HYPERTENSION
     Route: 048
  2. NAPROXEN [Suspect]
     Indication: OSTEOARTHRITIS
     Route: 048
  3. NAPROXEN [Suspect]
     Route: 048
  4. PROMETHAZINE [Concomitant]
     Route: 054
  5. DIMETHYL SULFONE [Concomitant]
     Route: 065

REACTIONS (18)
  - BLOOD PRESSURE SYSTOLIC INCREASED [None]
  - BODY TEMPERATURE INCREASED [None]
  - CARDIAC FAILURE CONGESTIVE [None]
  - CHOLELITHIASIS [None]
  - ELECTROCARDIOGRAM CHANGE [None]
  - FLUID OVERLOAD [None]
  - HAEMODIALYSIS [None]
  - HEART RATE INCREASED [None]
  - HEPATIC FAILURE [None]
  - HYPERKALAEMIA [None]
  - HYPERTENSION [None]
  - INTERNATIONAL NORMALISED RATIO INCREASED [None]
  - OVERDOSE [None]
  - RENAL DISORDER [None]
  - RENAL FAILURE [None]
  - RESPIRATORY RATE INCREASED [None]
  - TORSADE DE POINTES [None]
  - URINARY TRACT INFECTION [None]
